FAERS Safety Report 5676003-6 (Version None)
Quarter: 2008Q1

REPORT INFORMATION
  Report Type: 
  Country: None (occurrence: None)
  Receive Date: 20080318
  Receipt Date: 20080229
  Transmission Date: 20080703
  Serious: Yes (Death)
  Sender: FDA-Public Use
  Company Number: 2008-01635

PATIENT
  Age: 66 Year
  Sex: Male

DRUGS (10)
  1. METHYLPREDNISOLONE ACETATE [Suspect]
     Indication: POLYMYOSITIS
     Dosage: 500 MG, DAILY, INTRAVENOUS
     Route: 042
  2. PREDNISONE TAB [Suspect]
     Indication: IMMUNOSUPPRESSION
     Dosage: 30 MG, DAILY, ORAL; 7.5 MG, DAILY, ORAL
     Route: 048
  3. PREDNISONE TAB [Suspect]
     Indication: PROPHYLAXIS
     Dosage: 30 MG, DAILY, ORAL; 7.5 MG, DAILY, ORAL
     Route: 048
  4. COLCHICUM JTL LIQ [Suspect]
     Indication: GOUT
     Dosage: 1.2 MG, DAILY, ORAL
     Route: 048
  5. SIMVASTATIN [Suspect]
     Indication: HYPERLIPIDAEMIA
     Dosage: 60 MG, DAILY, ORAL; 30 MG, DAILY, ORAL
     Route: 048
  6. PROPOFOL [Suspect]
     Indication: SEDATION
     Dosage: 30 UG/KG, INTRAVENOUS
     Route: 042
  7. CYCLOSPORINE [Suspect]
     Indication: IMMUNOSUPPRESSION
     Dosage: 150 MG, DAILY, ORAL
     Route: 048
  8. CYCLOSPORINE [Suspect]
     Indication: PROPHYLAXIS
     Dosage: 150 MG, DAILY, ORAL
     Route: 048
  9. INSULIN (INSULIN) [Concomitant]
  10. MYCOPHENOLATE MOFETIL [Concomitant]

REACTIONS (2)
  - POTENTIATING DRUG INTERACTION [None]
  - RHABDOMYOLYSIS [None]
